FAERS Safety Report 13704164 (Version 1)
Quarter: 2017Q2

REPORT INFORMATION
  Report Type: Report from Study
  Country: IT (occurrence: IT)
  Receive Date: 20170630
  Receipt Date: 20170630
  Transmission Date: 20170830
  Serious: Yes (Hospitalization)
  Sender: FDA-Public Use
  Company Number: IT-TEVA-781914ACC

PATIENT
  Age: 48 Year
  Sex: Female

DRUGS (3)
  1. LORAZEPAM. [Suspect]
     Active Substance: LORAZEPAM
     Indication: DRUG USE DISORDER
     Route: 048
  2. QUETIAPINE. [Suspect]
     Active Substance: QUETIAPINE
     Indication: DRUG USE DISORDER
     Route: 048
  3. LITHIUM. [Suspect]
     Active Substance: LITHIUM
     Indication: DRUG USE DISORDER
     Route: 048

REACTIONS (3)
  - Sopor [Unknown]
  - Drug use disorder [Unknown]
  - Poisoning [Unknown]

NARRATIVE: CASE EVENT DATE: 20170524
